FAERS Safety Report 6810919-X (Version None)
Quarter: 2010Q2

REPORT INFORMATION
  Report Type: 
  Country: None (occurrence: None)
  Receive Date: 20100630
  Receipt Date: 20080801
  Transmission Date: 20101027
  Serious: No
  Sender: FDA-Public Use
  Company Number: US-PFIZER INC-2008056804

PATIENT
  Sex: Female
  Weight: 77.272 kg

DRUGS (5)
  1. ESTRING [Suspect]
     Indication: OESTROGEN REPLACEMENT THERAPY
     Dosage: FREQUENCY: 1 IN 3 M
     Dates: start: 20050101, end: 20080101
  2. DILTIAZEM [Concomitant]
  3. LEVOTHYROXINE SODIUM [Concomitant]
  4. HYDROCHLOROTHIAZIDE [Concomitant]
  5. POTASSIUM [Concomitant]

REACTIONS (1)
  - CHORIORETINOPATHY [None]
